FAERS Safety Report 9036733 (Version 1)
Quarter: 2013Q1

REPORT INFORMATION
  Report Type: Spontaneous
  Country: US (occurrence: None)
  Receive Date: 20130118
  Receipt Date: 20130118
  Transmission Date: 20140127
  Serious: No
  Sender: FDA-Public Use
  Company Number: None

PATIENT
  Age: 55 Year
  Sex: Male

DRUGS (2)
  1. AUGMENTIN [Suspect]
     Dates: start: 20110513, end: 20110526
  2. AZITHROMYCIN [Suspect]
     Dates: start: 20110429, end: 20110503

REACTIONS (3)
  - Drug-induced liver injury [None]
  - Hepatitis cholestatic [None]
  - Sinusitis [None]
